FAERS Safety Report 21184692 (Version 1)
Quarter: 2022Q3

REPORT INFORMATION
  Report Type: Spontaneous
  Country: US (occurrence: US)
  Receive Date: 20220808
  Receipt Date: 20220808
  Transmission Date: 20221026
  Serious: Yes (Death, Other)
  Sender: FDA-Public Use
  Company Number: US-BAYER-2022A108956

PATIENT
  Age: 61 Year
  Sex: Male

DRUGS (1)
  1. ALKA-SELTZER ORIGINAL [Suspect]
     Active Substance: ANHYDROUS CITRIC ACID\ASPIRIN\SODIUM BICARBONATE
     Dosage: UNK UNK, BIW
     Route: 048

REACTIONS (4)
  - Myocardial infarction [Fatal]
  - Alopecia [None]
  - Dyspnoea [None]
  - Gastric disorder [None]

NARRATIVE: CASE EVENT DATE: 20130101
